FAERS Safety Report 19246273 (Version 1)
Quarter: 2021Q2

REPORT INFORMATION
  Report Type: Spontaneous
  Country: US (occurrence: US)
  Receive Date: 20210511
  Receipt Date: 20210511
  Transmission Date: 20210717
  Serious: Yes (Life-Threatening, Hospitalization)
  Sender: FDA-Public Use
  Company Number: None

PATIENT
  Age: 61 Year
  Sex: Male
  Weight: 97.52 kg

DRUGS (6)
  1. VITAMIN C [Concomitant]
     Active Substance: ASCORBIC ACID
  2. TUMERIC [Concomitant]
     Active Substance: HERBALS\TURMERIC
  3. LISINOPRIL. [Concomitant]
     Active Substance: LISINOPRIL
  4. ROSUVASTATIN. [Concomitant]
     Active Substance: ROSUVASTATIN
  5. VITAMIN B12 [Concomitant]
     Active Substance: CYANOCOBALAMIN
  6. DUPIXENT [Suspect]
     Active Substance: DUPILUMAB
     Indication: CHRONIC RHINOSINUSITIS WITH NASAL POLYPS
     Dosage: FREQUENCY: TWICE PER MONTH
     Route: 058
     Dates: start: 20200303, end: 20210406

REACTIONS (5)
  - Injection site lymphadenopathy [None]
  - Injection site mass [None]
  - Double hit lymphoma [None]
  - Abdominal mass [None]
  - Abdominal pain [None]

NARRATIVE: CASE EVENT DATE: 20210413
